FAERS Safety Report 20883454 (Version 2)
Quarter: 2023Q1

REPORT INFORMATION
  Report Type: Spontaneous
  Country: DE (occurrence: DE)
  Receive Date: 20220527
  Receipt Date: 20230202
  Transmission Date: 20230418
  Serious: Yes (Death, Life-Threatening, Hospitalization, Other)
  Sender: FDA-Public Use
  Company Number: None

PATIENT
  Age: 51 Year
  Sex: Male
  Weight: 150 kg

DRUGS (6)
  1. JARDIANCE [Suspect]
     Active Substance: EMPAGLIFLOZIN
     Indication: Type 2 diabetes mellitus
     Route: 048
     Dates: start: 202011, end: 20230101
  2. JARDIANCE [Suspect]
     Active Substance: EMPAGLIFLOZIN
     Indication: Cardiac failure
  3. Ramipril 2,5 mg Tabletten [Concomitant]
     Indication: Product used for unknown indication
  4. Velmetia 50 mg/1000 mg Tabletten [Concomitant]
     Indication: Product used for unknown indication
  5. Eplerenon 25 mg Tabletten [Concomitant]
     Indication: Product used for unknown indication
  6. Metoprolol 47,5 mg Retardtabletten [Concomitant]
     Indication: Product used for unknown indication

REACTIONS (5)
  - Sepsis [Fatal]
  - Necrotising fasciitis [Unknown]
  - Fournier^s gangrene [Unknown]
  - Fournier^s gangrene [Recovered/Resolved with Sequelae]
  - Sepsis [Unknown]

NARRATIVE: CASE EVENT DATE: 20211027
